FAERS Safety Report 10749323 (Version 1)
Quarter: 2015Q1

REPORT INFORMATION
  Report Type: Report from Study
  Country: US (occurrence: None)
  Receive Date: 20150120
  Receipt Date: 20150120
  Transmission Date: 20150721
  Serious: No
  Sender: FDA-Public Use
  Company Number: AEGR000781

PATIENT
  Age: 54 Year
  Sex: Female
  Weight: 98.9 kg

DRUGS (15)
  1. AMITRIPTYLINE (AMITRIPTYLINE PAMOATE) [Concomitant]
  2. ASPIRIN (ACETYLSALICYLIC ACID) [Concomitant]
     Active Substance: ASPIRIN
  3. WELCHOL (COLESEVELAM HYDROCHLORIDE) [Concomitant]
  4. NORVASC [Suspect]
     Active Substance: AMLODIPINE BESYLATE
     Indication: BLOOD PRESSURE
     Dates: start: 20140923, end: 20141003
  5. DULCOLAX STOOL SOFTENER (DOCUSATE SODIUM) [Concomitant]
  6. VITAMIN E (TOCOPHERYL ACETATE) [Concomitant]
  7. JUXTAPID [Suspect]
     Active Substance: LOMITAPIDE MESYLATE
     Indication: TYPE IIA HYPERLIPIDAEMIA
     Route: 048
     Dates: start: 20140923
  8. CLARITIN [Concomitant]
     Active Substance: LORATADINE
  9. PANTOPRAZOLE (PANTOPRAZOLE SODIUM SESQUIHYDRATE) [Concomitant]
  10. VITAMIN B COMPLEX (BIOTIN, CALCIUM PANTOTHENATE, CHOLINE BITARTRATE, INOSITOL, NICOTINAMIDE, PYRIDOXINE HYDROCHLORIDE, RIBOFLAVIN, THIAMINE HYDROCHLORIDE) [Concomitant]
  11. ALBUTEROL HFA (SALBUTAMOL) [Concomitant]
  12. OMEGA 3 FISH OIL (FISH OIL) [Concomitant]
     Active Substance: OMEGA-3 FATTY ACIDS
  13. EZETIMIBE. [Concomitant]
     Active Substance: EZETIMIBE
  14. CALCIUM 600+D (CALCIUM, COLECALCIFEROL) [Concomitant]
  15. XANAX [Concomitant]
     Active Substance: ALPRAZOLAM

REACTIONS (3)
  - Fatigue [None]
  - Dizziness [None]
  - Asthenia [None]

NARRATIVE: CASE EVENT DATE: 201409
